FAERS Safety Report 10730068 (Version 4)
Quarter: 2017Q1

REPORT INFORMATION
  Report Type: Spontaneous
  Country: US (occurrence: US)
  Receive Date: 20150122
  Receipt Date: 20170217
  Transmission Date: 20170428
  Serious: Yes (Other)
  Sender: FDA-Public Use
  Company Number: US-PFIZER INC-2015022746

PATIENT
  Age: 37 Year
  Sex: Female

DRUGS (10)
  1. PROTONIX [Concomitant]
     Active Substance: PANTOPRAZOLE SODIUM
     Dosage: 40 MG, 2X/DAY
     Dates: start: 20160405
  2. LYRICA [Suspect]
     Active Substance: PREGABALIN
     Indication: EYE DISORDER
     Dosage: 150 MG, 3X/DAY
  3. ADDERALL [Concomitant]
     Active Substance: AMPHETAMINE ASPARTATE\AMPHETAMINE SULFATE\DEXTROAMPHETAMINE SACCHARATE\DEXTROAMPHETAMINE SULFATE
     Dosage: 30 MG, 2X/DAY
     Dates: start: 20160405
  4. PERCOCET [Concomitant]
     Active Substance: ACETAMINOPHEN\OXYCODONE HYDROCHLORIDE
     Indication: ARTHRALGIA
  5. DAILY MULTIVITAMIN [Concomitant]
     Active Substance: VITAMINS
     Dosage: 2/DAY
  6. LYRICA [Suspect]
     Active Substance: PREGABALIN
     Indication: NYSTAGMUS
     Dosage: 300 MG, 2X/DAY
     Dates: start: 20150105
  7. PERCOCET [Concomitant]
     Active Substance: ACETAMINOPHEN\OXYCODONE HYDROCHLORIDE
     Indication: PAIN
     Dosage: 1 DF (5/325), AS NEEDED
  8. PROTONIX [Concomitant]
     Active Substance: PANTOPRAZOLE SODIUM
     Dosage: 40 MG, 1X/DAY
  9. PRENATAL MV AND MIN/ FE-FA TABS [Concomitant]
     Dosage: UNK UNK, 1X/DAY
     Dates: start: 20160405
  10. LYRICA [Suspect]
     Active Substance: PREGABALIN
     Dosage: 300 MG, 2X/DAY (150 MG TWO PILLS TWICE PER DAY (600 MG PER DAY))
     Route: 048

REACTIONS (4)
  - Cerebrovascular accident [Unknown]
  - Product use issue [Unknown]
  - Visual impairment [Unknown]
  - Abasia [Unknown]
